FAERS Safety Report 5887563-4 (Version None)
Quarter: 2008Q3

REPORT INFORMATION
  Report Type: 
  Country: None (occurrence: None)
  Receive Date: 20080918
  Receipt Date: 20080911
  Transmission Date: 20090109
  Serious: Yes (Hospitalization)
  Sender: FDA-Public Use
  Company Number: PHHY2008AR21138

PATIENT
  Sex: Female

DRUGS (4)
  1. ACLASTA [Suspect]
     Indication: OSTEOPOROSIS
     Dosage: UNK
     Dates: start: 20060901
  2. ACLASTA [Suspect]
     Dosage: UNK
     Dates: start: 20070901
  3. ALPLAX [Concomitant]
  4. ULCOZOL [Concomitant]

REACTIONS (3)
  - EVENTRATION PROCEDURE [None]
  - HERNIA HIATUS REPAIR [None]
  - HIATUS HERNIA [None]
